FAERS Safety Report 12970937 (Version 2)
Quarter: 2019Q2

REPORT INFORMATION
  Report Type: Spontaneous
  Country: US (occurrence: US)
  Receive Date: 20161123
  Receipt Date: 20190614
  Transmission Date: 20190711
  Serious: No
  Sender: FDA-Public Use
  Company Number: US-JAZZ-2016-US-019768

PATIENT
  Sex: Female

DRUGS (46)
  1. ALLEGRA-D [Concomitant]
     Active Substance: FEXOFENADINE\PSEUDOEPHEDRINE
  2. PHENAZOPYRIDINE. [Concomitant]
     Active Substance: PHENAZOPYRIDINE
  3. CLONAZEPAM. [Concomitant]
     Active Substance: CLONAZEPAM
  4. SYNTHROID [Concomitant]
     Active Substance: LEVOTHYROXINE SODIUM
  5. NORCO [Concomitant]
     Active Substance: ACETAMINOPHEN\HYDROCODONE BITARTRATE
  6. POTASSIUM CL [Concomitant]
     Active Substance: POTASSIUM CHLORIDE
  7. MORPHINE SULF [Concomitant]
     Active Substance: MORPHINE SULFATE
  8. NUVIGIL [Concomitant]
     Active Substance: ARMODAFINIL
  9. ROBAXIN-750 [Concomitant]
  10. LEXAPRO [Concomitant]
     Active Substance: ESCITALOPRAM OXALATE
  11. CARBIDOPA LEVODOPA [Concomitant]
     Active Substance: CARBIDOPA\LEVODOPA
  12. ZYRTEC [Concomitant]
     Active Substance: CETIRIZINE HYDROCHLORIDE
  13. XYREM [Suspect]
     Active Substance: SODIUM OXYBATE
     Indication: CATAPLEXY
     Dosage: 3.75 G, BID
     Route: 048
     Dates: start: 200802, end: 2008
  14. COQ 10 [Concomitant]
     Active Substance: UBIDECARENONE
  15. MORPHINE SULFATE. [Concomitant]
     Active Substance: MORPHINE SULFATE
  16. CARISOPRODOL. [Concomitant]
     Active Substance: CARISOPRODOL
  17. MELOXICAM. [Concomitant]
     Active Substance: MELOXICAM
  18. METOPROLOL SUCC CT [Concomitant]
     Active Substance: METOPROLOL SUCCINATE
  19. DIOVAN [Concomitant]
     Active Substance: VALSARTAN
  20. MODAFINIL. [Concomitant]
     Active Substance: MODAFINIL
  21. XYREM [Suspect]
     Active Substance: SODIUM OXYBATE
     Indication: NARCOLEPSY
     Dosage: 3 G, BID
     Route: 048
     Dates: start: 200801, end: 2008
  22. PILOCARPINE HCL [Concomitant]
     Active Substance: PILOCARPINE HYDROCHLORIDE
  23. CRESTOR [Concomitant]
     Active Substance: ROSUVASTATIN CALCIUM
  24. DICLOFENAC [Concomitant]
     Active Substance: DICLOFENAC
  25. XYREM [Suspect]
     Active Substance: SODIUM OXYBATE
     Dosage: 4.5 G, BID
     Route: 048
     Dates: start: 200804
  26. VALIUM [Concomitant]
     Active Substance: DIAZEPAM
  27. ALLERX DF [Concomitant]
  28. TIZANIDINE HCL [Concomitant]
     Active Substance: TIZANIDINE HYDROCHLORIDE
  29. DAYTRANA [Concomitant]
     Active Substance: METHYLPHENIDATE
  30. HYDROCODONE BITARTRATE AND ACETAMINOPHEN [Concomitant]
     Active Substance: ACETAMINOPHEN\HYDROCODONE BITARTRATE
  31. TOPAMAX [Concomitant]
     Active Substance: TOPIRAMATE
  32. WELLBUTRIN [Concomitant]
     Active Substance: BUPROPION HYDROCHLORIDE
  33. CLONIDINE HCL [Concomitant]
     Active Substance: CLONIDINE HYDROCHLORIDE
  34. LISINOPRIL. [Concomitant]
     Active Substance: LISINOPRIL
  35. CALCIUM +VIT D [Concomitant]
     Active Substance: CALCIUM\VITAMIN D
  36. OMEPRAZOLE. [Concomitant]
     Active Substance: OMEPRAZOLE
  37. MORPHINE [Concomitant]
     Active Substance: MORPHINE
  38. ZITHROMAX [Concomitant]
     Active Substance: AZITHROMYCIN DIHYDRATE
  39. RELISTOR [Suspect]
     Active Substance: METHYLNALTREXONE BROMIDE
     Indication: PRODUCT USED FOR UNKNOWN INDICATION
  40. VIT D [Concomitant]
     Active Substance: VITAMIN D NOS
  41. NORVASC [Concomitant]
     Active Substance: AMLODIPINE BESYLATE
  42. FLUOXETINE HCL [Concomitant]
     Active Substance: FLUOXETINE HYDROCHLORIDE
  43. AMOXICILLIN. [Concomitant]
     Active Substance: AMOXICILLIN
  44. MAGNESIUM OXIDE HEAVY [Concomitant]
     Active Substance: MAGNESIUM OXIDE
  45. SENNALAX-S [Concomitant]
     Active Substance: DOCUSATE SODIUM\SENNOSIDES
  46. MOBIC [Concomitant]
     Active Substance: MELOXICAM

REACTIONS (3)
  - Hypersensitivity [Unknown]
  - Vitamin D decreased [Unknown]
  - Depression [Unknown]
